FAERS Safety Report 7737296-4 (Version None)
Quarter: 2011Q3

REPORT INFORMATION
  Report Type: 
  Country: None (occurrence: None)
  Receive Date: 20110908
  Receipt Date: 20110831
  Transmission Date: 20111222
  Serious: Yes (Other)
  Sender: FDA-Public Use
  Company Number: CA-AMGEN-CANSP2011042330

PATIENT
  Age: 60 Year
  Sex: Female

DRUGS (17)
  1. SIMVASTATIN [Concomitant]
     Indication: HYPERCHOLESTEROLAEMIA
     Dosage: 80 G, QD
     Dates: start: 20100101
  2. KAYEXALATE [Concomitant]
     Dosage: 15 G, 2 TIMES/WK
     Dates: start: 20110101
  3. VENOFER [Concomitant]
     Dosage: UNK
     Route: 042
     Dates: start: 20110101
  4. TERAZOSIN HCL [Concomitant]
     Indication: HYPERTENSION
     Dosage: 2.5 G, QD
     Dates: start: 20090101
  5. LACTULOSE [Concomitant]
     Dosage: 15 ML, PRN
     Dates: start: 20110101
  6. DILTIAZEM [Concomitant]
     Indication: HYPERTENSION
     Dosage: 300 G, QD
     Dates: start: 20100101
  7. VITAMIN D [Concomitant]
     Dosage: 1000 IU, QD
     Dates: start: 20090101
  8. LISINOPRIL [Concomitant]
     Indication: HYPERTENSION
     Dosage: 20 G, QD
     Dates: start: 20090101
  9. GLUCONORM                          /00082702/ [Concomitant]
     Indication: DIABETES MELLITUS
     Dosage: 4 MG, UNK
     Dates: start: 20090101
  10. ARANESP [Suspect]
     Indication: RENAL FAILURE
     Dosage: 150 MUG, 2 TIMES/WK
     Route: 058
     Dates: start: 20101209
  11. L-THYROXINE                        /00068001/ [Concomitant]
     Indication: HYPOTHYROIDISM
     Dosage: 0.15 NG, QD
  12. JANUVIA [Concomitant]
     Indication: DIABETES MELLITUS
     Dosage: 50 MG, QD
     Dates: start: 20110201
  13. CALCIUM CARBONATE [Concomitant]
     Indication: HYPERPHOSPHATAEMIA
     Dosage: 500 G, QD
     Dates: start: 20110101
  14. LANTUS [Concomitant]
     Dosage: 10 IU, UNK
  15. LOPRESSOR [Concomitant]
     Indication: HYPERTENSION
     Dosage: 100 G, QD
     Dates: start: 20090101
  16. ASPIRIN [Concomitant]
     Indication: CARDIOVASCULAR EVENT PROPHYLAXIS
     Dosage: 81 G, QD
     Dates: start: 20090101
  17. PROFERRIN [Concomitant]
     Indication: ANAEMIA
     Dosage: UNK UNK, BID
     Dates: start: 20100101

REACTIONS (8)
  - RENAL IMPAIRMENT [None]
  - THERAPEUTIC RESPONSE DECREASED [None]
  - IRON DEFICIENCY ANAEMIA [None]
  - MARROW HYPERPLASIA [None]
  - BLOOD PRESSURE SYSTOLIC INCREASED [None]
  - REFRACTORY ANAEMIA [None]
  - IRON DEFICIENCY [None]
  - HAEMOGLOBIN DECREASED [None]
